FAERS Safety Report 17496638 (Version 1)
Quarter: 2020Q1

REPORT INFORMATION
  Report Type: Spontaneous
  Country: US (occurrence: US)
  Receive Date: 20200304
  Receipt Date: 20200304
  Transmission Date: 20200409
  Serious: No
  Sender: FDA-Public Use
  Company Number: None

PATIENT
  Age: 69 Year
  Sex: Female
  Weight: 85 kg

DRUGS (3)
  1. EXEMESTANE 25MG [Concomitant]
     Active Substance: EXEMESTANE
     Dates: start: 20200219
  2. IBRANCE [Suspect]
     Active Substance: PALBOCICLIB
     Indication: BREAST CANCER
     Route: 048
  3. RADIATION TREATMENT [Concomitant]
     Active Substance: RADIATION THERAPY

REACTIONS (4)
  - Vomiting [None]
  - Nausea [None]
  - Rash [None]
  - Feeding disorder [None]

NARRATIVE: CASE EVENT DATE: 20200226
